FAERS Safety Report 9357467 (Version 2)
Quarter: 2013Q4

REPORT INFORMATION
  Report Type: Report from Study
  Country: TR (occurrence: TR)
  Receive Date: 20130620
  Receipt Date: 20131001
  Transmission Date: 20140711
  Serious: Yes (Hospitalization)
  Sender: FDA-Public Use
  Company Number: PHHO2013TR007521

PATIENT
  Sex: 0

DRUGS (3)
  1. AMN107 [Suspect]
     Indication: CHRONIC MYELOID LEUKAEMIA
     Dosage: 150 MG, 2X2
     Route: 048
     Dates: start: 20120413, end: 20130602
  2. AMN107 [Suspect]
     Dosage: 150 MG, 2X2
     Route: 048
     Dates: start: 20130604
  3. ANTIHYPERTENSIVES [Concomitant]

REACTIONS (1)
  - Angina pectoris [Recovering/Resolving]
